FAERS Safety Report 6483436-7 (Version None)
Quarter: 2009Q4

REPORT INFORMATION
  Report Type: 
  Country: None (occurrence: None)
  Receive Date: 20091209
  Receipt Date: 20091127
  Transmission Date: 20100525
  Serious: Yes (Hospitalization)
  Sender: FDA-Public Use
  Company Number: FR-PFIZER INC-2009211452

PATIENT
  Age: 60 Year
  Sex: Female
  Weight: 75 kg

DRUGS (7)
  1. PEGVISOMANT [Suspect]
     Indication: ACROMEGALY
     Dosage: 10 MG, DAILY
     Route: 058
     Dates: start: 20061207
  2. LEVOTHYROXINE SODIUM [Concomitant]
     Dosage: UNK
  3. TRIMETAZIDINE [Concomitant]
     Dosage: UNK
  4. LIPANTHYL [Concomitant]
     Dosage: UNK
  5. GLUCOR [Concomitant]
     Dosage: UNK
  6. HYDROCORTISONE [Concomitant]
     Dosage: UNK
  7. KARDEGIC [Concomitant]
     Dosage: UNK

REACTIONS (2)
  - CHOLECYSTITIS ACUTE [None]
  - SEPTIC SHOCK [None]
